FAERS Safety Report 8615208-9 (Version None)
Quarter: 2012Q3

REPORT INFORMATION
  Report Type: 
  Country: None (occurrence: None)
  Receive Date: 20120823
  Receipt Date: 20120821
  Transmission Date: 20120928
  Serious: Yes (Other)
  Sender: FDA-Public Use
  Company Number: US-PFIZER INC-2012205265

PATIENT
  Age: 61 Year
  Sex: Female
  Weight: 86.168 kg

DRUGS (1)
  1. PROTONIX [Suspect]
     Indication: GASTROOESOPHAGEAL REFLUX DISEASE
     Dosage: 40 MG, 1X/DAY
     Route: 048

REACTIONS (7)
  - AUTOIMMUNE DISORDER [None]
  - ARTHROPATHY [None]
  - ANTINUCLEAR ANTIBODY POSITIVE [None]
  - HYPERSENSITIVITY [None]
  - ALLERGY TO METALS [None]
  - ARTHRITIS [None]
  - SINUSITIS [None]
